FAERS Safety Report 6873990-5 (Version None)
Quarter: 2010Q3

REPORT INFORMATION
  Report Type: 
  Country: None (occurrence: None)
  Receive Date: 20100723
  Receipt Date: 20090318
  Transmission Date: 20110219
  Serious: No
  Sender: FDA-Public Use
  Company Number: US-PFIZER INC-2009188403

PATIENT
  Sex: Female
  Weight: 88.9 kg

DRUGS (1)
  1. CHANTIX [Suspect]
     Indication: SMOKING CESSATION THERAPY
     Dosage: 1 MG, 2X/DAY
     Dates: start: 20090301, end: 20090316

REACTIONS (4)
  - DIZZINESS [None]
  - DYSGEUSIA [None]
  - MALAISE [None]
  - NAUSEA [None]
